FAERS Safety Report 9537722 (Version 2)
Quarter: 2013Q4

REPORT INFORMATION
  Report Type: Report from Study
  Country: DE (occurrence: DE)
  Receive Date: 20130919
  Receipt Date: 20131112
  Transmission Date: 20140711
  Serious: Yes (Hospitalization)
  Sender: FDA-Public Use
  Company Number: DE-ABBVIE-13P-062-1148317-00

PATIENT
  Sex: Male
  Weight: 92 kg

DRUGS (2)
  1. ZEMPLAR [Suspect]
     Indication: HYPERPARATHYROIDISM SECONDARY
  2. HEPARINE [Concomitant]
     Indication: PRODUCT USED FOR UNKNOWN INDICATION

REACTIONS (7)
  - Hernia obstructive [Recovered/Resolved]
  - Intestinal haematoma [Recovered/Resolved]
  - Ascites [Recovered/Resolved]
  - Diarrhoea [Unknown]
  - Inflammatory marker increased [Unknown]
  - Diverticular hernia [Recovered/Resolved with Sequelae]
  - Incisional hernia [Recovered/Resolved with Sequelae]
